FAERS Safety Report 23282078 (Version 1)
Quarter: 2023Q4

REPORT INFORMATION
  Report Type: Spontaneous
  Country: US (occurrence: None)
  Receive Date: 20231208
  Receipt Date: 20231208
  Transmission Date: 20240110
  Serious: No
  Sender: FDA-Public Use
  Company Number: None

PATIENT
  Sex: Male

DRUGS (1)
  1. HUMIRA [Suspect]
     Active Substance: ADALIMUMAB
     Indication: Ankylosing spondylitis
     Dosage: OTHER QUANTITY : 40MG/0.4ML ;?OTHER FREQUENCY : EVERY 14 DAYS;?
     Route: 058
     Dates: start: 20220125

REACTIONS (2)
  - Drug ineffective [None]
  - Condition aggravated [None]
